FAERS Safety Report 11376935 (Version 1)
Quarter: 2015Q3

REPORT INFORMATION
  Report Type: Report from Study
  Country: CA (occurrence: CA)
  Receive Date: 20150813
  Receipt Date: 20150813
  Transmission Date: 20151125
  Serious: Yes (Death, Hospitalization)
  Sender: FDA-Public Use
  Company Number: CA-ACTELION-A-US2015-122224

PATIENT
  Age: 68 Year
  Sex: Female
  Weight: 30.84 kg

DRUGS (14)
  1. OXYBUTYNIN [Concomitant]
     Active Substance: OXYBUTYNIN
  2. NEXIUM [Concomitant]
     Active Substance: ESOMEPRAZOLE MAGNESIUM
  3. OXYGEN. [Concomitant]
     Active Substance: OXYGEN
  4. PROLIA [Concomitant]
     Active Substance: DENOSUMAB
  5. SPIRONOLACTONE. [Concomitant]
     Active Substance: SPIRONOLACTONE
  6. METOLAZONE. [Concomitant]
     Active Substance: METOLAZONE
  7. FUROSEMIDE. [Concomitant]
     Active Substance: FUROSEMIDE
  8. ANASTROZOLE. [Concomitant]
     Active Substance: ANASTROZOLE
  9. TYLENOL [Concomitant]
     Active Substance: ACETAMINOPHEN
  10. ASA [Concomitant]
     Active Substance: ASPIRIN
  11. VITAMIN D [Concomitant]
     Active Substance: CHOLECALCIFEROL
  12. PREDNISONE. [Concomitant]
     Active Substance: PREDNISONE
  13. VELETRI [Suspect]
     Active Substance: EPOPROSTENOL
     Indication: PULMONARY ARTERIAL HYPERTENSION
     Dosage: UNK
     Route: 042
     Dates: start: 20150126
  14. ADCIRCA [Concomitant]
     Active Substance: TADALAFIL

REACTIONS (2)
  - Disease progression [Fatal]
  - Pulmonary hypertension [Fatal]
